FAERS Safety Report 7594515-5 (Version None)
Quarter: 2011Q2

REPORT INFORMATION
  Report Type: 
  Country: None (occurrence: None)
  Receive Date: 20110628
  Receipt Date: 20110620
  Transmission Date: 20111010
  Serious: Yes (Other)
  Sender: FDA-Public Use
  Company Number: ACO_25338_2011

PATIENT
  Age: 40 Year
  Sex: Female

DRUGS (6)
  1. AMPYRA [Suspect]
     Indication: GAIT DISTURBANCE
     Dosage: 10 MG, Q 12 HRS
     Dates: start: 20110101
  2. AMPYRA [Suspect]
  3. AMPYRA [Suspect]
  4. AMPYRA [Suspect]
  5. AMPYRA [Suspect]
  6. AVONEX [Concomitant]

REACTIONS (1)
  - BREAST CANCER FEMALE [None]
